FAERS Safety Report 12247552 (Version 1)
Quarter: 2016Q2

REPORT INFORMATION
  Report Type: Report from Study
  Country: US (occurrence: US)
  Receive Date: 20160407
  Receipt Date: 20160407
  Transmission Date: 20160815
  Serious: Yes (Hospitalization, Other)
  Sender: FDA-Public Use
  Company Number: US-TAKEDA-TPA2010A03534

PATIENT
  Age: 62 Year
  Sex: Male
  Weight: 60.1 kg

DRUGS (4)
  1. RAMIPIRIL [Concomitant]
     Route: 065
  2. PIOGLITAZONE. [Suspect]
     Active Substance: PIOGLITAZONE
     Indication: PRODUCT USED FOR UNKNOWN INDICATION
     Route: 048
     Dates: start: 20081117, end: 20100121
  3. ASA [Concomitant]
     Active Substance: ASPIRIN
     Route: 065
  4. TYLENOL [Concomitant]
     Active Substance: ACETAMINOPHEN
     Route: 065

REACTIONS (2)
  - Hip fracture [Recovered/Resolved]
  - Oropharyngeal cancer [Unknown]

NARRATIVE: CASE EVENT DATE: 20100120
